FAERS Safety Report 11758854 (Version 1)
Quarter: 2015Q4

REPORT INFORMATION
  Report Type: Spontaneous
  Country: US (occurrence: US)
  Receive Date: 20151120
  Receipt Date: 20151120
  Transmission Date: 20160304
  Serious: Yes (Other)
  Sender: FDA-Public Use
  Company Number: US-PFIZER INC-2015391932

PATIENT
  Age: 67 Year
  Sex: Female

DRUGS (1)
  1. ACCUPRIL [Suspect]
     Active Substance: QUINAPRIL HYDROCHLORIDE
     Dosage: 20 MG, UNK

REACTIONS (3)
  - Pulmonary hypertension [Unknown]
  - Anaemia [Unknown]
  - Dyspnoea [Unknown]
